FAERS Safety Report 11438006 (Version 1)
Quarter: 2015Q3

REPORT INFORMATION
  Report Type: Spontaneous
  Country: US (occurrence: US)
  Receive Date: 20150831
  Receipt Date: 20150831
  Transmission Date: 20151125
  Serious: Yes (Hospitalization, Other)
  Sender: FDA-Public Use
  Company Number: US-ABBVIE-15P-163-1454733-00

PATIENT
  Sex: Male

DRUGS (1)
  1. HUMIRA [Suspect]
     Active Substance: ADALIMUMAB
     Indication: CROHN^S DISEASE
     Route: 050

REACTIONS (6)
  - Drug ineffective [Unknown]
  - Gastrointestinal fistula [Unknown]
  - Crohn^s disease [Unknown]
  - Abdominal abscess [Unknown]
  - Malnutrition [Unknown]
  - Decreased appetite [Unknown]
